FAERS Safety Report 16018630 (Version 1)
Quarter: 2019Q1

REPORT INFORMATION
  Report Type: Spontaneous
  Country: US (occurrence: US)
  Receive Date: 20190201
  Receipt Date: 20190201
  Transmission Date: 20190418
  Serious: No
  Sender: FDA-Public Use
  Company Number: None

PATIENT
  Age: 76 Year
  Sex: Male

DRUGS (1)
  1. IMATINIB TAB (X30) 400MG [Suspect]
     Active Substance: IMATINIB
     Route: 048
     Dates: start: 201801

REACTIONS (2)
  - Oedema [None]
  - Diarrhoea [None]

NARRATIVE: CASE EVENT DATE: 20190111
